FAERS Safety Report 7292385-6 (Version None)
Quarter: 2011Q1

REPORT INFORMATION
  Report Type: 
  Country: None (occurrence: None)
  Receive Date: 20110215
  Receipt Date: 20110201
  Transmission Date: 20110831
  Serious: Yes (Life-Threatening)
  Sender: FDA-Public Use
  Company Number: BE-MYLANLABS-2011S1002318

PATIENT
  Age: 53 Year
  Sex: Female

DRUGS (2)
  1. MIRTAZAPINE [Suspect]
     Dates: start: 20070801
  2. TAMOXIFEN CITRATE [Suspect]
     Indication: BREAST CANCER
     Route: 065
     Dates: start: 20070201, end: 20070701

REACTIONS (13)
  - SUICIDE ATTEMPT [None]
  - INSOMNIA [None]
  - HOT FLUSH [None]
  - DECREASED APPETITE [None]
  - SWEAT GLAND DISORDER [None]
  - DISTURBANCE IN ATTENTION [None]
  - MEMORY IMPAIRMENT [None]
  - VAGINAL DISCHARGE [None]
  - GUN SHOT WOUND [None]
  - AFFECTIVE DISORDER [None]
  - URINARY TRACT INFECTION [None]
  - HAEMORRHOIDAL HAEMORRHAGE [None]
  - FATIGUE [None]
